FAERS Safety Report 18671879 (Version 1)
Quarter: 2020Q4

REPORT INFORMATION
  Report Type: Spontaneous
  Country: FR (occurrence: FR)
  Receive Date: 20201228
  Receipt Date: 20201228
  Transmission Date: 20210114
  Serious: Yes (Hospitalization)
  Sender: FDA-Public Use
  Company Number: NVSC2020FR339812

PATIENT
  Age: 1 Year
  Sex: Male

DRUGS (3)
  1. POLYDEXA [Suspect]
     Active Substance: DEXAMETHASONE SODIUM PHOSPHATE\NEOMYCIN SULFATE\POLYMYXIN B SULFATE
     Indication: EAR INFECTION
     Dosage: 1 DF, ONCE/SINGLE
     Route: 001
     Dates: start: 20190404
  2. ADVIL [Suspect]
     Active Substance: IBUPROFEN
     Indication: EAR INFECTION
     Dosage: 1 DF, ONCE/SINGLE
     Route: 048
     Dates: start: 20190404, end: 20190404
  3. AMOXICILLINE [Suspect]
     Active Substance: AMOXICILLIN
     Indication: EAR INFECTION
     Dosage: 1 DF, ONCE/SINGLE
     Route: 048
     Dates: start: 20190404, end: 20190404

REACTIONS (1)
  - Lip oedema [Recovered/Resolved]

NARRATIVE: CASE EVENT DATE: 20190404
